FAERS Safety Report 19272723 (Version 1)
Quarter: 2021Q2

REPORT INFORMATION
  Report Type: Spontaneous
  Country: FR (occurrence: FR)
  Receive Date: 20210518
  Receipt Date: 20210518
  Transmission Date: 20210717
  Serious: Yes (Hospitalization)
  Sender: FDA-Public Use
  Company Number: FR-JNJFOC-20210518036

PATIENT
  Age: 52 Year
  Sex: Female
  Weight: 67 kg

DRUGS (23)
  1. ELIQUIS [Concomitant]
     Active Substance: APIXABAN
     Indication: PRODUCT USED FOR UNKNOWN INDICATION
     Route: 065
  2. BROMAZEPAM [Concomitant]
     Active Substance: BROMAZEPAM
     Indication: PRODUCT USED FOR UNKNOWN INDICATION
     Route: 065
  3. BACTRIM [Concomitant]
     Active Substance: SULFAMETHOXAZOLE\TRIMETHOPRIM
     Indication: PRODUCT USED FOR UNKNOWN INDICATION
     Route: 065
  4. PARACETAMOL [Concomitant]
     Active Substance: ACETAMINOPHEN
     Indication: PRODUCT USED FOR UNKNOWN INDICATION
     Route: 065
  5. DEXAMETHASONE. [Concomitant]
     Active Substance: DEXAMETHASONE
     Dosage: PREMIER CYCLE: LES JOURS ET LES LENDEMAIN DE VELCADE SOIT J1, J2, J4, J5 ,J8, J9, J11 ET J12
     Route: 048
     Dates: start: 20210405, end: 20210406
  6. SKENAN [Concomitant]
     Active Substance: MORPHINE SULFATE
     Indication: PRODUCT USED FOR UNKNOWN INDICATION
     Route: 065
  7. VELCADE [Suspect]
     Active Substance: BORTEZOMIB
     Dosage: PREMIER CYCLE: J1, J4, J8 ET J11; IN TOTAL
     Route: 059
     Dates: start: 20210401, end: 20210401
  8. DARZALEX [Suspect]
     Active Substance: DARATUMUMAB
     Dosage: PREMIER CYCLE: J1, J8 ET J15; IN TOTAL
     Route: 041
     Dates: start: 20210329, end: 20210329
  9. DEXAMETHASONE. [Concomitant]
     Active Substance: DEXAMETHASONE
     Dosage: PREMIER CYCLE: LES JOURS ET LES LENDEMAIN DE VELCADE SOIT J1, J2, J4, J5 ,J8, J9, J11 ET J12
     Route: 048
     Dates: start: 20210401, end: 20210402
  10. DEXAMETHASONE. [Concomitant]
     Active Substance: DEXAMETHASONE
     Indication: PLASMA CELL MYELOMA
     Dosage: PREMIER CYCLE: LES JOURS ET LES LENDEMAIN DE VELCADE SOIT J1, J2, J4, J5 ,J8, J9, J11 ET J12
     Route: 048
     Dates: start: 20210408, end: 20210409
  11. DEXAMETHASONE. [Concomitant]
     Active Substance: DEXAMETHASONE
     Dosage: PREMIER CYCLE: LES JOURS ET LES LENDEMAIN DE VELCADE SOIT J1, J2, J4, J5 ,J8, J9, J11 ET J12
     Route: 048
     Dates: start: 20210329, end: 20210330
  12. AMOXICILLINE TEVA [Concomitant]
     Active Substance: AMOXICILLIN
     Indication: PRODUCT USED FOR UNKNOWN INDICATION
     Route: 065
  13. ACTISKENAN [Concomitant]
     Active Substance: MORPHINE SULFATE
     Indication: PRODUCT USED FOR UNKNOWN INDICATION
     Route: 065
  14. MOVICOL [Concomitant]
     Active Substance: POLYETHYLENE GLYCOL 3350\POTASSIUM CHLORIDE\SODIUM BICARBONATE\SODIUM CHLORIDE
     Indication: PRODUCT USED FOR UNKNOWN INDICATION
     Route: 065
  15. VELCADE [Suspect]
     Active Substance: BORTEZOMIB
     Indication: PLASMA CELL MYELOMA
     Dosage: PREMIER CYCLE: J1, J4, J8 ET J11; IN TOTAL
     Route: 059
     Dates: start: 20210405, end: 20210405
  16. VELCADE [Suspect]
     Active Substance: BORTEZOMIB
     Dosage: PREMIER CYCLE: J1, J4, J8 ET J11; IN TOTAL
     Route: 059
     Dates: start: 20210408, end: 20210408
  17. VELCADE [Suspect]
     Active Substance: BORTEZOMIB
     Dosage: PREMIER CYCLE: J1, J4, J8 ET J11; IN TOTAL
     Route: 059
     Dates: start: 20210329, end: 20210329
  18. DARZALEX [Suspect]
     Active Substance: DARATUMUMAB
     Dosage: PREMIER CYCLE: J1, J8 ET J15; IN TOTAL
     Route: 041
     Dates: start: 20210405, end: 20210405
  19. REVLIMID [Suspect]
     Active Substance: LENALIDOMIDE
     Indication: PLASMA CELL MYELOMA
     Dosage: PREMIER CYCLE:1 CP LE SOIR DE J1 A J14 PUIS PAUSE DE 7 JOURS
     Route: 048
     Dates: start: 20210329, end: 20210411
  20. CACIT D3 [Concomitant]
     Active Substance: CALCIUM\CHOLECALCIFEROL
     Indication: PRODUCT USED FOR UNKNOWN INDICATION
     Route: 065
  21. PANTOPRAZOLE [Concomitant]
     Active Substance: PANTOPRAZOLE
     Indication: PRODUCT USED FOR UNKNOWN INDICATION
     Route: 065
  22. DARZALEX [Suspect]
     Active Substance: DARATUMUMAB
     Indication: PLASMA CELL MYELOMA
     Dosage: PREMIER CYCLE: J1, J8 ET J15; IN TOTAL
     Route: 041
     Dates: start: 20210412, end: 20210412
  23. VALACICLOVIR [Concomitant]
     Active Substance: VALACYCLOVIR HYDROCHLORIDE
     Indication: PRODUCT USED FOR UNKNOWN INDICATION
     Route: 065

REACTIONS (1)
  - Febrile neutropenia [Recovered/Resolved]

NARRATIVE: CASE EVENT DATE: 20210417
